FAERS Safety Report 19632536 (Version 1)
Quarter: 2021Q3

REPORT INFORMATION
  Report Type: Spontaneous
  Country: US (occurrence: US)
  Receive Date: 20210728
  Receipt Date: 20210728
  Transmission Date: 20211014
  Serious: Yes (Hospitalization, Disabling, Other)
  Sender: FDA-Public Use
  Company Number: US-ROCHE-2625371

PATIENT
  Age: 63 Year
  Sex: Male
  Weight: 78.8 kg

DRUGS (13)
  1. XELODA [Suspect]
     Active Substance: CAPECITABINE
     Dosage: 2000 MG AT AM AND 2500 MG AT PM
     Route: 048
     Dates: start: 20200706, end: 20200714
  2. VIAGRA [Concomitant]
     Active Substance: SILDENAFIL CITRATE
     Route: 048
  3. XELODA [Suspect]
     Active Substance: CAPECITABINE
     Route: 048
     Dates: start: 202101
  4. XELODA [Suspect]
     Active Substance: CAPECITABINE
     Route: 048
     Dates: start: 20200610
  5. LISINOPRIL. [Concomitant]
     Active Substance: LISINOPRIL
     Route: 048
  6. TYLENOL [Concomitant]
     Active Substance: ACETAMINOPHEN
     Route: 048
  7. XARELTO [Concomitant]
     Active Substance: RIVAROXABAN
     Route: 048
  8. XELODA [Suspect]
     Active Substance: CAPECITABINE
     Dosage: IN THE MORNING ON DAYS 1?14 OF 21 DAY CYCLE
     Route: 048
  9. XELODA [Suspect]
     Active Substance: CAPECITABINE
     Route: 048
     Dates: start: 202102
  10. CLARITIN [Concomitant]
     Active Substance: LORATADINE
     Route: 048
  11. XELODA [Suspect]
     Active Substance: CAPECITABINE
     Indication: COLON CANCER
     Route: 048
     Dates: start: 20200610
  12. XELODA [Suspect]
     Active Substance: CAPECITABINE
     Dosage: IN THE MORNING ON DAYS 1?14 OF 21 DAY CYCLE
     Route: 048
     Dates: start: 202101
  13. VITAMIN D3 [Concomitant]
     Active Substance: CHOLECALCIFEROL
     Route: 048

REACTIONS (9)
  - Neuropathy peripheral [Recovered/Resolved]
  - Dehydration [Unknown]
  - Palmar-plantar erythrodysaesthesia syndrome [Recovered/Resolved]
  - Colitis [Unknown]
  - Hypokalaemia [Recovered/Resolved]
  - Fatigue [Unknown]
  - Diarrhoea [Recovered/Resolved]
  - Macrocytosis [Recovered/Resolved]
  - Decreased appetite [Unknown]

NARRATIVE: CASE EVENT DATE: 20200610
